FAERS Safety Report 9979428 (Version 1)
Quarter: 2014Q1

REPORT INFORMATION
  Report Type: Spontaneous
  Country: US (occurrence: US)
  Receive Date: 20140306
  Receipt Date: 20140306
  Transmission Date: 20141002
  Serious: No
  Sender: FDA-Public Use
  Company Number: US-ABBVIE-13P-163-1172818-00

PATIENT
  Age: 46 Year
  Sex: Female

DRUGS (13)
  1. HUMIRA [Suspect]
     Indication: CROHN^S DISEASE
     Dosage: LOADING DOSE
     Dates: start: 201211, end: 201211
  2. HUMIRA [Suspect]
     Dosage: SECOND DOSE
     Dates: start: 2012, end: 2012
  3. HUMIRA [Suspect]
     Dates: start: 2012
  4. LEVOTHYROXINE [Concomitant]
     Indication: HYPOTHYROIDISM
  5. LIOTHYRONINE [Concomitant]
     Indication: HYPOTHYROIDISM
  6. PAXIL [Concomitant]
     Indication: ANXIETY
  7. POTASSIUM [Concomitant]
     Indication: BLOOD POTASSIUM DECREASED
  8. EFFEXOR [Concomitant]
     Indication: MENTAL DISORDER
  9. PHENERGAN [Concomitant]
     Indication: NAUSEA
  10. LORAZEPAM [Concomitant]
     Indication: ANXIETY
  11. KEPPRA [Concomitant]
     Indication: CONVULSION
  12. HYDROCODONE [Concomitant]
     Indication: PAIN
  13. MULTIVITAMIN [Concomitant]
     Indication: VITAMIN SUPPLEMENTATION

REACTIONS (6)
  - Device issue [Recovered/Resolved]
  - Incorrect dose administered [Recovered/Resolved]
  - Endometriosis [Not Recovered/Not Resolved]
  - Injection site pain [Recovered/Resolved]
  - Injection site pain [Recovered/Resolved]
  - Injection site reaction [Recovered/Resolved]
